FAERS Safety Report 5315608-9 (Version None)
Quarter: 2007Q2

REPORT INFORMATION
  Report Type: 
  Country: None (occurrence: None)
  Receive Date: 20070503
  Receipt Date: 20070423
  Transmission Date: 20071010
  Serious: Yes (Other)
  Sender: FDA-Public Use
  Company Number: US-GENENTECH-239560

PATIENT
  Sex: Female

DRUGS (4)
  1. AVASTIN [Suspect]
     Indication: BREAST CANCER
  2. ABRAXANE [Concomitant]
     Indication: BREAST CANCER
  3. FASLODEX [Concomitant]
     Indication: DRUG USE FOR UNKNOWN INDICATION
  4. CARBOPLATIN [Concomitant]
     Indication: DRUG USE FOR UNKNOWN INDICATION

REACTIONS (1)
  - HEPATIC CIRRHOSIS [None]
